FAERS Safety Report 4440185-4 (Version None)
Quarter: 2004Q3

REPORT INFORMATION
  Report Type: 
  Country: None (occurrence: None)
  Receive Date: 20040901
  Receipt Date: 20040901
  Transmission Date: 20050211
  Serious: No
  Sender: FDA-Public Use
  Company Number: None

PATIENT
  Age: 23 Year
  Sex: Female
  Weight: 77.1115 kg

DRUGS (4)
  1. REMICADE [Suspect]
     Indication: CROHN'S DISEASE
     Dosage: 400MG IV Q 8 WKS
     Route: 042
     Dates: start: 20040804
  2. ADVIL [Concomitant]
  3. ORTHO TRI-CYCLEN [Concomitant]
  4. ALLERX [Concomitant]

REACTIONS (5)
  - BURNING SENSATION [None]
  - ERYTHEMA [None]
  - PAIN [None]
  - PHOTOSENSITIVITY REACTION [None]
  - SWELLING [None]
